FAERS Safety Report 5875633-6 (Version None)
Quarter: 2008Q3

REPORT INFORMATION
  Report Type: 
  Country: None (occurrence: None)
  Receive Date: 20080909
  Receipt Date: 20080828
  Transmission Date: 20090109
  Serious: Yes (Other)
  Sender: FDA-Public Use
  Company Number: US-ELI_LILLY_AND_COMPANY-US200808006528

PATIENT
  Sex: Female
  Weight: 122.36 kg

DRUGS (11)
  1. BYETTA [Suspect]
     Indication: TYPE 2 DIABETES MELLITUS
     Dosage: 5 UG, 2/D
     Route: 058
     Dates: start: 20071201, end: 20080701
  2. BYETTA [Interacting]
     Dosage: 10 UG, 2/D
     Route: 058
     Dates: start: 20080701
  3. BYETTA [Interacting]
     Dosage: 10 UG, 2/D
     Route: 058
     Dates: start: 20080701
  4. ACTOS [Concomitant]
     Indication: TYPE 2 DIABETES MELLITUS
     Dosage: UNK, DAILY (1/D)
  5. GLUCOPHAGE [Concomitant]
     Indication: TYPE 2 DIABETES MELLITUS
     Dosage: 300 MG, 3/D
  6. ANTI-DIABETICS [Concomitant]
     Indication: DIABETES MELLITUS
     Route: 048
  7. LYRICA [Concomitant]
     Dosage: 150 MG, 2/D
  8. LISINOPRIL [Concomitant]
     Indication: CARDIAC DISORDER
  9. LASIX [Concomitant]
     Dosage: 10 MG, DAILY (1/D)
  10. LASIX [Concomitant]
     Dosage: 10 MG, 4/D
     Dates: start: 20080826
  11. LANOXIN [Concomitant]

REACTIONS (19)
  - ABDOMINAL DISTENSION [None]
  - ASTHENIA [None]
  - BALANCE DISORDER [None]
  - BLOOD GLUCOSE INCREASED [None]
  - CONVULSION [None]
  - DRUG INTERACTION [None]
  - EYE DISORDER [None]
  - FALL [None]
  - HALLUCINATION, VISUAL [None]
  - HYPOACUSIS [None]
  - INJECTION SITE PAIN [None]
  - MOBILITY DECREASED [None]
  - NECK PAIN [None]
  - NEUROPATHY PERIPHERAL [None]
  - OEDEMA PERIPHERAL [None]
  - POOR PERIPHERAL CIRCULATION [None]
  - SCAR [None]
  - VISUAL ACUITY REDUCED [None]
  - WEIGHT DECREASED [None]
